FAERS Safety Report 25528580 (Version 2)
Quarter: 2025Q3

REPORT INFORMATION
  Report Type: Spontaneous
  Country: EU (occurrence: EU)
  Receive Date: 20250708
  Receipt Date: 20250722
  Transmission Date: 20251020
  Serious: Yes (Life-Threatening, Hospitalization, Other)
  Sender: ACCORD
  Company Number: EU-Accord-493098

PATIENT
  Age: 50 Year
  Sex: Male

DRUGS (2)
  1. METHOTREXATE [Suspect]
     Active Substance: METHOTREXATE
     Indication: Rheumatoid arthritis
     Dates: start: 202003, end: 202009
  2. ABATACEPT [Suspect]
     Active Substance: ABATACEPT
     Indication: Rheumatoid arthritis
     Dates: start: 202009, end: 202105

REACTIONS (9)
  - Disseminated leishmaniasis [Recovered/Resolved]
  - Hepatosplenomegaly [Unknown]
  - Haemangioma of liver [Unknown]
  - Effusion [Unknown]
  - Left ventricular hypertrophy [Recovered/Resolved]
  - Varices oesophageal [Recovered/Resolved]
  - Pancytopenia [Recovered/Resolved]
  - Visceral leishmaniasis [Recovered/Resolved]
  - Cutaneous leishmaniasis [Recovered/Resolved]

NARRATIVE: CASE EVENT DATE: 20210101
